FAERS Safety Report 7563213-6 (Version None)
Quarter: 2011Q2

REPORT INFORMATION
  Report Type: 
  Country: None (occurrence: None)
  Receive Date: 20110622
  Receipt Date: 20110617
  Transmission Date: 20111010
  Serious: Yes (Death)
  Sender: FDA-Public Use
  Company Number: US-SANOFI-AVENTIS-2011SA038501

PATIENT
  Sex: Male

DRUGS (9)
  1. DOXAZOSIN MESYLATE [Concomitant]
  2. ASPIRIN [Concomitant]
  3. LISINOPRIL [Concomitant]
  4. VERPAMIL HCL [Concomitant]
  5. RANOLAZINE [Concomitant]
  6. ATENOLOL [Concomitant]
  7. PLAVIX [Suspect]
     Route: 048
     Dates: start: 20090422
  8. PRAVASTATIN [Concomitant]
  9. NITROGLYCERIN [Concomitant]

REACTIONS (1)
  - DEATH [None]
